FAERS Safety Report 17111170 (Version 3)
Quarter: 2020Q4

REPORT INFORMATION
  Report Type: Other
  Country: KR (occurrence: KR)
  Receive Date: 20191204
  Receipt Date: 20201231
  Transmission Date: 20210113
  Serious: Yes (Other)
  Sender: FDA-Public Use
  Company Number: KR-ROCHE-2480587

PATIENT
  Age: 48 Year
  Sex: Female

DRUGS (18)
  1. PERTUZUMAB. [Suspect]
     Active Substance: PERTUZUMAB
     Indication: BREAST CANCER
     Route: 065
     Dates: start: 20191004
  2. DOCETAXEL. [Suspect]
     Active Substance: DOCETAXEL
     Route: 042
     Dates: start: 20191115, end: 20200207
  3. SMECTA [Concomitant]
     Active Substance: MONTMORILLONITE
     Route: 048
     Dates: start: 20201206, end: 20201208
  4. DOCETAXEL. [Suspect]
     Active Substance: DOCETAXEL
     Indication: BREAST CANCER
     Route: 042
     Dates: start: 20191004
  5. PERTUZUMAB. [Suspect]
     Active Substance: PERTUZUMAB
     Route: 065
     Dates: start: 20191025
  6. ENTELON [Concomitant]
     Indication: POSTMASTECTOMY LYMPHOEDEMA SYNDROME
     Route: 048
     Dates: start: 20191015
  7. TRASTUZUMAB. [Suspect]
     Active Substance: TRASTUZUMAB
     Route: 042
     Dates: start: 20191004, end: 20200207
  8. PACLITAXEL. [Concomitant]
     Active Substance: PACLITAXEL
  9. NORZYME [Concomitant]
     Route: 048
     Dates: start: 20201206, end: 20201213
  10. PERTUZUMAB. [Suspect]
     Active Substance: PERTUZUMAB
     Dosage: SUBSEQUENT DOSE RECEIVED ON 16/DEC/2019, 27/DEC/2019, 17/JAN/2019 AND 07/FEB/2020.
     Route: 065
     Dates: start: 20191115
  11. TRASTUZUMAB. [Suspect]
     Active Substance: TRASTUZUMAB
     Indication: BREAST CANCER
     Route: 042
     Dates: start: 20191004, end: 20191004
  12. TYLENOL [Concomitant]
     Active Substance: ACETAMINOPHEN
     Route: 048
     Dates: start: 20200204, end: 20200206
  13. GASMOTIN [Concomitant]
     Active Substance: MOSAPRIDE CITRATE
     Route: 048
     Dates: start: 20201206, end: 20201213
  14. PENIRAMIN [Concomitant]
     Route: 042
     Dates: start: 20191004, end: 20200207
  15. BANAN [Concomitant]
     Active Substance: CEFPODOXIME PROXETIL
     Route: 048
     Dates: start: 20191126, end: 20191205
  16. BANAN [Concomitant]
     Active Substance: CEFPODOXIME PROXETIL
     Route: 048
     Dates: start: 20200204, end: 20200206
  17. SOLETON [Concomitant]
     Active Substance: ZALTOPROFEN
     Route: 048
     Dates: start: 2019, end: 20201210
  18. CAROL-F [Concomitant]
     Route: 048
     Dates: start: 20200204, end: 20200206

REACTIONS (8)
  - Pruritus [Recovering/Resolving]
  - Diarrhoea [Recovered/Resolved]
  - Neutrophil count decreased [Recovered/Resolved]
  - Dermatitis bullous [Recovering/Resolving]
  - Vomiting [Recovered/Resolved]
  - Pyrexia [Recovered/Resolved]
  - Alanine aminotransferase increased [Recovered/Resolved]
  - Aspartate aminotransferase increased [Recovered/Resolved]

NARRATIVE: CASE EVENT DATE: 20191011
